FAERS Safety Report 22335761 (Version 3)
Quarter: 2023Q2

REPORT INFORMATION
  Report Type: Spontaneous
  Country: DE (occurrence: DE)
  Receive Date: 20230518
  Receipt Date: 20230613
  Transmission Date: 20230721
  Serious: Yes (Hospitalization, Other)
  Sender: FDA-Public Use
  Company Number: DE-DAIICHI SANKYO EUROPE GMBH-DSE-2023-116932

PATIENT
  Age: 74 Year
  Sex: Female
  Weight: 64 kg

DRUGS (5)
  1. BEMPEDOIC ACID\EZETIMIBE [Suspect]
     Active Substance: BEMPEDOIC ACID\EZETIMIBE
     Indication: Hypercholesterolaemia
     Dosage: 1 DF (180MG/10 MG), QD
     Route: 065
     Dates: start: 202206, end: 20230422
  2. BEMPEDOIC ACID\EZETIMIBE [Suspect]
     Active Substance: BEMPEDOIC ACID\EZETIMIBE
     Indication: Hyperlipidaemia
  3. CINACALCET [Concomitant]
     Active Substance: CINACALCET
     Indication: Product used for unknown indication
     Dosage: 1 DF, QD
     Route: 065
  4. CHOLECALCIFEROL [Concomitant]
     Active Substance: CHOLECALCIFEROL
     Indication: Product used for unknown indication
     Dosage: 1 GTT, QD (20000 IU/ML)
     Route: 065
  5. VITAMIN B COMPLEX [Concomitant]
     Active Substance: CYANOCOBALAMIN\DEXPANTHENOL\NIACINAMIDE\PYRIDOXINE HYDROCHLORIDE\RIBOFLAVIN 5^-PHOSPHATE SODIUM\THIA
     Indication: Product used for unknown indication
     Dosage: UNK
     Route: 065

REACTIONS (40)
  - Arthritis [Not Recovered/Not Resolved]
  - Nephropathy [Unknown]
  - Renal impairment [Unknown]
  - Asthenia [Recovering/Resolving]
  - Tricuspid valve incompetence [Unknown]
  - Mitral valve incompetence [Unknown]
  - Hyperuricaemia [Not Recovered/Not Resolved]
  - Arthralgia [Recovering/Resolving]
  - Gout [Not Recovered/Not Resolved]
  - Myalgia [Recovering/Resolving]
  - Ileocaecal resection [Unknown]
  - Bile duct stone [Unknown]
  - Paraparesis [Unknown]
  - Parathyroid tumour benign [Unknown]
  - Addison^s disease [Unknown]
  - Cholestasis [Unknown]
  - Hypercalcaemia [Unknown]
  - Toxicity to various agents [Unknown]
  - Goitre [Unknown]
  - Uterine polyp [Unknown]
  - Monoparesis [Unknown]
  - Joint swelling [Recovering/Resolving]
  - Palpitations [Unknown]
  - Supraventricular extrasystoles [Unknown]
  - Red blood cell sedimentation rate increased [Unknown]
  - Hyponatraemia [Unknown]
  - Diastolic dysfunction [Unknown]
  - Systolic dysfunction [Unknown]
  - Tachycardia [Recovered/Resolved]
  - Hypertension [Unknown]
  - Arthralgia [Recovering/Resolving]
  - Rash [Unknown]
  - Fatigue [Unknown]
  - Pain [Recovering/Resolving]
  - Synovitis [Recovered/Resolved]
  - Musculoskeletal discomfort [Unknown]
  - Cervix disorder [Unknown]
  - Polyuria [Unknown]
  - Muscular weakness [Recovering/Resolving]
  - Therapy cessation [Not Recovered/Not Resolved]

NARRATIVE: CASE EVENT DATE: 20220601
